FAERS Safety Report 8811136 (Version 1)
Quarter: 2012Q4

REPORT INFORMATION
  Report Type: Spontaneous
  Country: US (occurrence: None)
  Receive Date: 20120925
  Receipt Date: 20120925
  Transmission Date: 20130627
  Serious: Yes (Life-Threatening)
  Sender: FDA-Public Use
  Company Number: None

PATIENT
  Age: 79 Year
  Sex: Female
  Weight: 73.48 kg

DRUGS (1)
  1. DIOVAN [Suspect]
     Indication: BLOOD PRESSURE HIGH
     Dosage: 1 per day
     Dates: start: 201104, end: 20120813

REACTIONS (8)
  - Dysphonia [None]
  - Dizziness [None]
  - Nausea [None]
  - Fatigue [None]
  - Diarrhoea [None]
  - Headache [None]
  - Cough [None]
  - Visual impairment [None]
